FAERS Safety Report 17832319 (Version 1)
Quarter: 2020Q2

REPORT INFORMATION
  Report Type: Spontaneous
  Country: US (occurrence: US)
  Receive Date: 20200527
  Receipt Date: 20200527
  Transmission Date: 20200714
  Serious: No
  Sender: FDA-Public Use
  Company Number: US-ROCHE-2448927

PATIENT
  Sex: Female
  Weight: 62.92 kg

DRUGS (6)
  1. SEROQUEL [Concomitant]
     Active Substance: QUETIAPINE FUMARATE
     Route: 048
     Dates: start: 201909
  2. OCREVUS [Suspect]
     Active Substance: OCRELIZUMAB
     Indication: MULTIPLE SCLEROSIS
     Dosage: CYCLE 1
     Route: 042
     Dates: start: 20171229, end: 20180112
  3. LEXAPRO [Concomitant]
     Active Substance: ESCITALOPRAM OXALATE
     Dosage: FOR MOOD
     Route: 048
     Dates: start: 201901
  4. OCREVUS [Suspect]
     Active Substance: OCRELIZUMAB
     Dosage: CYCLE 2
     Route: 042
     Dates: start: 20180629
  5. OCREVUS [Suspect]
     Active Substance: OCRELIZUMAB
     Dosage: CYCLE 4
     Route: 042
     Dates: start: 20190625
  6. OCREVUS [Suspect]
     Active Substance: OCRELIZUMAB
     Dosage: CYCLE 3
     Route: 042
     Dates: start: 20190113

REACTIONS (2)
  - Therapeutic response shortened [Unknown]
  - Malaise [Unknown]
